FAERS Safety Report 9431998 (Version 1)
Quarter: 2013Q3

REPORT INFORMATION
  Report Type: Spontaneous
  Country: GB (occurrence: None)
  Receive Date: 20130726
  Receipt Date: 20130726
  Transmission Date: 20140515
  Serious: Yes (Other)
  Sender: FDA-Public Use
  Company Number: AUR-APL-2013-06088

PATIENT
  Age: 77 Year
  Sex: Female

DRUGS (3)
  1. BISOPROLOL (BISOPROLOL) [Suspect]
     Indication: BLOOD PRESSURE INCREASED
     Route: 048
  2. LOSARTAN (LOSARTAN) [Suspect]
     Route: 048
  3. TIMOLOL (TIMOLOL) (NONE) [Suspect]
     Route: 047

REACTIONS (4)
  - Asthenia [None]
  - Dizziness [None]
  - Headache [None]
  - Drug interaction [None]
